FAERS Safety Report 6851150-1 (Version None)
Quarter: 2010Q3

REPORT INFORMATION
  Report Type: 
  Country: None (occurrence: None)
  Receive Date: 20100716
  Receipt Date: 20080109
  Transmission Date: 20110219
  Serious: No
  Sender: FDA-Public Use
  Company Number: US-PFIZER INC-2007092041

PATIENT
  Sex: Female
  Weight: 59.1 kg

DRUGS (7)
  1. CHANTIX [Suspect]
     Indication: SMOKING CESSATION THERAPY
     Route: 048
     Dates: start: 20071018
  2. CELEBREX [Concomitant]
  3. FEMARA [Concomitant]
  4. OSCAL [Concomitant]
  5. ACETYLSALICYLIC ACID [Concomitant]
  6. ALL OTHER THERAPEUTIC PRODUCTS [Concomitant]
  7. LOTENSIN [Concomitant]

REACTIONS (5)
  - ABDOMINAL DISCOMFORT [None]
  - ABDOMINAL PAIN UPPER [None]
  - DYSPEPSIA [None]
  - INFLUENZA LIKE ILLNESS [None]
  - NIGHTMARE [None]
